FAERS Safety Report 9461401 (Version 2)
Quarter: 2013Q3

REPORT INFORMATION
  Report Type: Report from Study
  Country: PR (occurrence: PR)
  Receive Date: 20130816
  Receipt Date: 20130828
  Transmission Date: 20140515
  Serious: Yes (Other)
  Sender: FDA-Public Use
  Company Number: PR-ABBOTT-13P-131-1120632-00

PATIENT
  Age: 57 Year
  Sex: Female
  Weight: 56.75 kg

DRUGS (10)
  1. HUMIRA [Suspect]
     Indication: RHEUMATOID ARTHRITIS
     Route: 058
     Dates: start: 201203, end: 20130617
  2. METHOTREXATE [Concomitant]
     Indication: RHEUMATOID ARTHRITIS
     Dates: start: 2003
  3. TEGRETOL [Concomitant]
     Indication: TRIGEMINAL NEURALGIA
     Dosage: 200 MG BIG PRN
     Route: 048
     Dates: start: 1995
  4. STRESS TAB COMPLEX [Concomitant]
     Indication: VITAMIN SUPPLEMENTATION
     Route: 048
     Dates: start: 1985
  5. FOLIC ACID [Concomitant]
     Indication: RHEUMATOID ARTHRITIS
     Route: 048
     Dates: start: 2003
  6. CALTRATE [Concomitant]
     Indication: PRODUCT USED FOR UNKNOWN INDICATION
     Route: 048
     Dates: start: 2003
  7. RECLAST [Concomitant]
     Indication: OSTEOPOROSIS
     Route: 042
     Dates: start: 201305, end: 201305
  8. AMOXIL [Concomitant]
     Indication: DENTAL CLEANING
     Route: 048
     Dates: start: 201305, end: 201305
  9. AMOXIL [Concomitant]
     Indication: PRODUCT USED FOR UNKNOWN INDICATION
  10. FOSAMAX [Concomitant]
     Indication: OSTEOPOROSIS
     Dates: start: 2011, end: 201304

REACTIONS (2)
  - Breast cancer [Not Recovered/Not Resolved]
  - Impaired healing [Recovered/Resolved]
